FAERS Safety Report 16606571 (Version 1)
Quarter: 2019Q3

REPORT INFORMATION
  Report Type: Spontaneous
  Country: GB (occurrence: GB)
  Receive Date: 20190722
  Receipt Date: 20190722
  Transmission Date: 20191004
  Serious: Yes (Other)
  Sender: FDA-Public Use
  Company Number: GB-ROCHE-2359079

PATIENT
  Age: 51 Year
  Sex: Female
  Weight: 95 kg

DRUGS (9)
  1. CELECOXIB. [Concomitant]
     Active Substance: CELECOXIB
     Dosage: INSTEAD OF NAPROXEN
     Route: 065
     Dates: start: 20190502
  2. ROACTEMRA [Suspect]
     Active Substance: TOCILIZUMAB
     Indication: PRODUCT USED FOR UNKNOWN INDICATION
     Route: 065
     Dates: start: 20190624
  3. FOSTAIR [Concomitant]
     Active Substance: BECLOMETHASONE\FORMOTEROL
     Route: 055
     Dates: start: 20180523
  4. PREGABALIN. [Concomitant]
     Active Substance: PREGABALIN
     Dosage: TAKE UP TO TWO  TWICE A DAY
     Route: 065
     Dates: start: 20180523
  5. PHENOXYMETHYLPENICILLIN [Concomitant]
     Active Substance: PENICILLIN V
     Route: 065
     Dates: start: 20190624
  6. LOSARTAN. [Concomitant]
     Active Substance: LOSARTAN
     Route: 065
     Dates: start: 20180523
  7. ALL OTHER THERAPEUTIC PRODUCTS [Concomitant]
     Active Substance: UNSPECIFIED INGREDIENT
     Route: 065
     Dates: start: 20180523
  8. LANSOPRAZOLE. [Concomitant]
     Active Substance: LANSOPRAZOLE
     Route: 065
     Dates: start: 20180523
  9. COCODAMOL [Concomitant]
     Active Substance: ACETAMINOPHEN\CODEINE PHOSPHATE
     Dosage: TAKE 1 OR 2 UP TO 4 TIMES/DAY
     Route: 065
     Dates: start: 20180523

REACTIONS (3)
  - Aphthous ulcer [Unknown]
  - Oropharyngeal pain [Unknown]
  - Rash erythematous [Unknown]

NARRATIVE: CASE EVENT DATE: 20190624
